FAERS Safety Report 9196770 (Version 4)
Quarter: 2013Q4

REPORT INFORMATION
  Report Type: Report from Study
  Country: JP (occurrence: JP)
  Receive Date: 20130328
  Receipt Date: 20131128
  Transmission Date: 20140711
  Serious: Yes (Life-Threatening)
  Sender: FDA-Public Use
  Company Number: JP-JNJFOC-20130314655

PATIENT
  Age: 32 Year
  Sex: Female
  Weight: 52 kg

DRUGS (6)
  1. STELARA [Suspect]
     Indication: PSORIASIS
     Route: 058
     Dates: start: 20130712, end: 20130712
  2. STELARA [Suspect]
     Indication: PSORIASIS
     Route: 058
     Dates: start: 20130405, end: 20130405
  3. STELARA [Suspect]
     Indication: PSORIASIS
     Route: 058
     Dates: start: 20130111, end: 20130111
  4. STELARA [Suspect]
     Indication: PSORIASIS
     Route: 058
     Dates: start: 20121214, end: 20121214
  5. DERMOVATE [Concomitant]
     Indication: PSORIASIS
     Route: 061
     Dates: start: 20121126
  6. OXAROL [Concomitant]
     Indication: PSORIASIS
     Route: 061
     Dates: start: 20121126

REACTIONS (1)
  - Meningitis aseptic [Recovered/Resolved]
